FAERS Safety Report 5113265-8 (Version None)
Quarter: 2006Q3

REPORT INFORMATION
  Report Type: 
  Country: None (occurrence: None)
  Receive Date: 20060920
  Receipt Date: 20060907
  Transmission Date: 20061208
  Serious: Yes (Hospitalization)
  Sender: FDA-Public Use
  Company Number: FABR-11331

PATIENT
  Age: 35 Year
  Sex: Male
  Weight: 97.7 kg

DRUGS (9)
  1. FABRAZYME [Suspect]
     Indication: FABRY'S DISEASE
     Dosage: 105 MG Q2WKS IV
     Route: 042
  2. FABRAZYME [Suspect]
     Indication: FABRY'S DISEASE
     Dosage: 1 MG/KG Q2WKS IV
     Route: 042
     Dates: start: 20000714, end: 20030626
  3. LEXAPRO [Concomitant]
  4. PLAVIX [Concomitant]
  5. FABRAZYME [Suspect]
     Indication: FABRY'S DISEASE
     Dosage: 1 MG/KG Q2WKS IV
     Route: 042
     Dates: start: 19980506, end: 19980629
  6. AMITRIPTYLINE HCL [Concomitant]
  7. FOSINOPRIL SODIUM [Concomitant]
  8. MAXZIDE [Concomitant]
  9. XANAX [Concomitant]

REACTIONS (20)
  - ABDOMINAL PAIN [None]
  - APPENDICITIS [None]
  - CONVULSION [None]
  - DEPRESSION [None]
  - DIARRHOEA [None]
  - DRUG INEFFECTIVE [None]
  - ERYTHEMA [None]
  - FACE OEDEMA [None]
  - IMPAIRED WORK ABILITY [None]
  - INSOMNIA [None]
  - NAUSEA [None]
  - OBSTRUCTIVE AIRWAYS DISORDER [None]
  - OEDEMA PERIPHERAL [None]
  - PAIN [None]
  - PAIN IN EXTREMITY [None]
  - PALATAL OEDEMA [None]
  - PETECHIAE [None]
  - RASH MACULAR [None]
  - VOMITING PROJECTILE [None]
  - WEIGHT DECREASED [None]
